FAERS Safety Report 26088606 (Version 1)
Quarter: 2025Q4

REPORT INFORMATION
  Report Type: Spontaneous
  Country: EU (occurrence: EU)
  Receive Date: 20251125
  Receipt Date: 20251125
  Transmission Date: 20260118
  Serious: Yes (Other)
  Sender: BRISTOL-MYERS SQUIBB COMPANY
  Company Number: EU-BRISTOL-MYERS SQUIBB COMPANY-2025-100595

PATIENT
  Age: 61 Year
  Sex: Male
  Weight: 100 kg

DRUGS (8)
  1. ELIQUIS [Suspect]
     Active Substance: APIXABAN
     Indication: Atrial fibrillation
     Dates: start: 20250710
  2. ELIQUIS [Suspect]
     Active Substance: APIXABAN
     Dosage: REDUCED THE DOSE
  3. TORSEMIDE [Concomitant]
     Active Substance: TORSEMIDE
     Indication: Product used for unknown indication
     Dosage: 10MG IN THE MORNINGS/ 5MG IN THE EVENINGS
  4. TORSEMIDE [Concomitant]
     Active Substance: TORSEMIDE
     Dosage: 5MG IN THE EVENINGS
  5. FARXIGA [Concomitant]
     Active Substance: DAPAGLIFLOZIN PROPANEDIOL
     Indication: Product used for unknown indication
     Dosage: 10MG IN THE MORNINGS
  6. BISOPROLOL [Concomitant]
     Active Substance: BISOPROLOL
     Indication: Product used for unknown indication
     Dosage: 5MG IN THE MORNINGS
  7. SODIUM BICARBONATE [Concomitant]
     Active Substance: SODIUM BICARBONATE
     Indication: Product used for unknown indication
     Dosage: 500MG IN THE MORNINGS
  8. LOPERAMIDE [Concomitant]
     Active Substance: LOPERAMIDE
     Indication: Product used for unknown indication
     Dosage: 2 TABLETS WITH EVERY MEAL

REACTIONS (3)
  - Haemoptysis [Not Recovered/Not Resolved]
  - Atrial fibrillation [Recovering/Resolving]
  - Wheezing [Unknown]
